FAERS Safety Report 4679699-0 (Version None)
Quarter: 2005Q2

REPORT INFORMATION
  Report Type: 
  Country: None (occurrence: None)
  Receive Date: 20050531
  Receipt Date: 20050520
  Transmission Date: 20051028
  Serious: Yes (Hospitalization, Other)
  Sender: FDA-Public Use
  Company Number: 2005-05-1530

PATIENT
  Age: 31 Year
  Sex: Female

DRUGS (3)
  1. CELESTAMINE TAB [Suspect]
     Indication: RHINITIS ALLERGIC
     Dosage: 3 TAB ORAL
     Route: 048
     Dates: start: 20050303, end: 20050503
  2. ULCERLMIN [Concomitant]
  3. SCOPOLIA EXTRACT [Concomitant]

REACTIONS (4)
  - CHEST X-RAY ABNORMAL [None]
  - DYSPNOEA EXERTIONAL [None]
  - HYPERSENSITIVITY [None]
  - INFECTION [None]
